FAERS Safety Report 26045655 (Version 2)
Quarter: 2025Q4

REPORT INFORMATION
  Report Type: Spontaneous
  Country: AU (occurrence: AU)
  Receive Date: 20251114
  Receipt Date: 20251118
  Transmission Date: 20260117
  Serious: Yes (Death, Hospitalization, Other)
  Sender: BOEHRINGER INGELHEIM
  Company Number: AU-BoehringerIngelheim-2025-BI-106978

PATIENT
  Age: 79 Year
  Sex: Male

DRUGS (6)
  1. JARDIANCE [Suspect]
     Active Substance: EMPAGLIFLOZIN
     Indication: Type 2 diabetes mellitus
  2. AMLODIPINE\TELMISARTAN [Concomitant]
     Active Substance: AMLODIPINE\TELMISARTAN
     Indication: Product used for unknown indication
     Dosage: ONE DOSE ONCE DAILY
  3. GLICLAZIDE [Concomitant]
     Active Substance: GLICLAZIDE
     Indication: Type 2 diabetes mellitus
     Dosage: MODIFIED RELEASE
  4. METFORMIN HYDROCHLORIDE [Concomitant]
     Active Substance: METFORMIN HYDROCHLORIDE
     Indication: Type 2 diabetes mellitus
     Dosage: MODIFIED RELEASE
  5. MOXONIDINE [Concomitant]
     Active Substance: MOXONIDINE
     Indication: Product used for unknown indication
  6. ROSUVASTATIN [Concomitant]
     Active Substance: ROSUVASTATIN
     Indication: Product used for unknown indication

REACTIONS (18)
  - Emphysematous cystitis [Fatal]
  - General physical health deterioration [Unknown]
  - Device related infection [Unknown]
  - Hyperglycaemic hyperosmolar nonketotic syndrome [Unknown]
  - Aphonia [Unknown]
  - Constipation [Unknown]
  - Lethargy [Unknown]
  - Malaise [Unknown]
  - Necrotising fasciitis [Unknown]
  - Oropharyngeal pain [Unknown]
  - Pain in extremity [Unknown]
  - Urosepsis [Unknown]
  - Vomiting [Unknown]
  - Decreased appetite [Unknown]
  - Tooth loss [Unknown]
  - Weight decreased [Unknown]
  - Septic shock [Unknown]
  - Therapy change [Unknown]
